FAERS Safety Report 5540629-0 (Version None)
Quarter: 2007Q4

REPORT INFORMATION
  Report Type: 
  Country: None (occurrence: None)
  Receive Date: 20071129
  Receipt Date: 20070425
  Transmission Date: 20080405
  Serious: Yes (Hospitalization, Other)
  Sender: FDA-Public Use
  Company Number: US200703002535

PATIENT
  Age: 49 Year
  Sex: Male
  Weight: 97.1 kg

DRUGS (8)
  1. ZYPREXA [Suspect]
     Dosage: 10 MG, 20  MG
     Dates: start: 19971001, end: 20041001
  2. ABILIFY [Concomitant]
  3. SEROQUEL [Concomitant]
  4. RISPERIDONE [Concomitant]
  5. GEODON [Concomitant]
  6. HALDOL (HALOPERIDOL DECANOATE) [Concomitant]
  7. LITHIUM CARBONATE [Concomitant]
  8. EFFEXOR [Concomitant]

REACTIONS (6)
  - DIABETES MELLITUS [None]
  - DIABETIC COMA [None]
  - DIABETIC KETOACIDOSIS [None]
  - HYPERGLYCAEMIA [None]
  - HYPERLIPIDAEMIA [None]
  - PANCREATITIS [None]
